FAERS Safety Report 5876738-6 (Version None)
Quarter: 2008Q3

REPORT INFORMATION
  Report Type: 
  Country: None (occurrence: None)
  Receive Date: 20080910
  Receipt Date: 20080905
  Transmission Date: 20090109
  Serious: Yes (Other)
  Sender: FDA-Public Use
  Company Number: US-MERCK-0808USA02101

PATIENT
  Age: 78 Year
  Sex: Female

DRUGS (4)
  1. FOSAMAX PLUS D [Suspect]
     Indication: OSTEOPOROSIS
     Route: 048
     Dates: start: 20060801, end: 20080101
  2. FOSAMAX PLUS D [Suspect]
     Route: 048
     Dates: start: 20080101
  3. FOSAMAX [Concomitant]
     Indication: OSTEOPOROSIS
     Route: 048
     Dates: start: 19990501
  4. FOSAMAX [Concomitant]
     Route: 048
     Dates: start: 20050801

REACTIONS (1)
  - ATRIAL FIBRILLATION [None]
